FAERS Safety Report 5659377-1 (Version None)
Quarter: 2008Q1

REPORT INFORMATION
  Report Type: 
  Country: None (occurrence: None)
  Receive Date: 20080311
  Receipt Date: 20080221
  Transmission Date: 20080703
  Serious: Yes (Other)
  Sender: FDA-Public Use
  Company Number: US-RANBAXY-2008US-13000

PATIENT

DRUGS (4)
  1. ISOTRETINOIN [Suspect]
     Indication: DRUG USE FOR UNKNOWN INDICATION
     Dosage: 40 MG, QD
     Route: 048
     Dates: start: 20070731, end: 20080130
  2. ZITHROMAX [Concomitant]
     Indication: SINUSITIS
     Dosage: UNK
     Route: 048
  3. BIRTH CONTROL PILLS [Concomitant]
     Indication: CONTRACEPTION
     Dosage: UNK
  4. CLARAVIS [Suspect]
     Dosage: UNK

REACTIONS (2)
  - PREGNANCY [None]
  - SINUSITIS [None]
